FAERS Safety Report 20019604 (Version 2)
Quarter: 2021Q4

REPORT INFORMATION
  Report Type: Report from Study
  Country: US (occurrence: US)
  Receive Date: 20211101
  Receipt Date: 20211108
  Transmission Date: 20220303
  Serious: Yes (Life-Threatening, Hospitalization, Other)
  Sender: FDA-Public Use
  Company Number: US-ALNYLAM PHARMACEUTICALS, INC.-ALN-2021-002723

PATIENT

DRUGS (3)
  1. ONPATTRO [Suspect]
     Active Substance: PATISIRAN SODIUM
     Indication: Amyloidosis senile
     Dosage: UNK UNK, Q3W
     Route: 042
     Dates: start: 20180115
  2. DEXAMETHASONE [Concomitant]
     Active Substance: DEXAMETHASONE
     Indication: Prophylaxis
     Route: 065
  3. DIPHENHYDRAMINE [Concomitant]
     Active Substance: DIPHENHYDRAMINE
     Indication: Prophylaxis
     Route: 065

REACTIONS (11)
  - Subdural haematoma [Unknown]
  - Heart transplant [Unknown]
  - Wolff-Parkinson-White syndrome [Recovered/Resolved]
  - Craniotomy [Recovered/Resolved]
  - Syncope [Recovered/Resolved]
  - Weight fluctuation [Unknown]
  - Medication error [Unknown]
  - Head injury [Recovered/Resolved]
  - Fall [Unknown]
  - Emotional distress [Unknown]
  - Fluid retention [Unknown]

NARRATIVE: CASE EVENT DATE: 20190813
